FAERS Safety Report 13082648 (Version 1)
Quarter: 2017Q1

REPORT INFORMATION
  Report Type: Spontaneous
  Country: US (occurrence: US)
  Receive Date: 20170103
  Receipt Date: 20170103
  Transmission Date: 20170428
  Serious: No
  Sender: FDA-Public Use
  Company Number: US-CMP PHARMA-2016CMP00048

PATIENT
  Age: 68 Year
  Sex: Female

DRUGS (1)
  1. TRIANEX [Suspect]
     Active Substance: TRIAMCINOLONE ACETONIDE
     Indication: PRURITUS
     Dosage: UNK
     Route: 061
     Dates: start: 201410, end: 201410

REACTIONS (2)
  - Erythema [Unknown]
  - Hypersensitivity [Unknown]

NARRATIVE: CASE EVENT DATE: 201410
